FAERS Safety Report 23915350 (Version 2)
Quarter: 2024Q2

REPORT INFORMATION
  Report Type: Spontaneous
  Country: JP (occurrence: None)
  Receive Date: 20240529
  Receipt Date: 20240606
  Transmission Date: 20240715
  Serious: Yes (Hospitalization)
  Sender: FDA-Public Use
  Company Number: 2024A121795

PATIENT
  Age: 83 Year
  Sex: Male

DRUGS (9)
  1. DAPAGLIFLOZIN [Suspect]
     Active Substance: DAPAGLIFLOZIN
     Indication: Cardiac failure chronic
     Route: 048
  2. LOKELMA [Suspect]
     Active Substance: SODIUM ZIRCONIUM CYCLOSILICATE
     Dosage: NUMBER OF SEPARATE DOSAGES UNKNOWN
     Route: 048
  3. AZOSEMIDE [Concomitant]
     Active Substance: AZOSEMIDE
     Dosage: NUMBER OF SEPARATE DOSAGES UNKNOWN
  4. TOLVAPTAN [Concomitant]
     Active Substance: TOLVAPTAN
     Dosage: NUMBER OF SEPARATE DOSAGES UNKNOWN
  5. CLOPIDOGREL [Concomitant]
     Active Substance: CLOPIDOGREL BISULFATE
     Dosage: NUMBER OF SEPARATE DOSAGES UNKNOWN
  6. EDOXABAN TOSYLATE [Concomitant]
     Active Substance: EDOXABAN TOSYLATE
     Dosage: NUMBER OF SEPARATE DOSAGES UNKNOWN
  7. BISOPROLOL [Concomitant]
     Active Substance: BISOPROLOL\BISOPROLOL FUMARATE
     Dosage: NUMBER OF SEPARATE DOSAGES UNKNOWN
     Route: 062
  8. LANSOPRAZOLE [Concomitant]
     Active Substance: LANSOPRAZOLE
     Dosage: NUMBER OF SEPARATE DOSAGES UNKNOWN
  9. DAPRODUSTAT [Concomitant]
     Active Substance: DAPRODUSTAT
     Dosage: NUMBER OF SEPARATE DOSAGES UNKNOWN

REACTIONS (1)
  - Diabetes mellitus [Unknown]

NARRATIVE: CASE EVENT DATE: 20240301
